FAERS Safety Report 4931450-2 (Version None)
Quarter: 2006Q1

REPORT INFORMATION
  Report Type: 
  Country: None (occurrence: None)
  Receive Date: 20060228
  Receipt Date: 20060203
  Transmission Date: 20060701
  Serious: Yes (Hospitalization)
  Sender: FDA-Public Use
  Company Number: US200602001128

PATIENT
  Age: 75 Year
  Sex: Female

DRUGS (2)
  1. FORTEO [Suspect]
     Dates: start: 20051201, end: 20051201
  2. FORTEO PEN (FORTEO PEN), PEN DISPOSABLE [Concomitant]

REACTIONS (1)
  - CARDIAC ARREST [None]
